FAERS Safety Report 6612228-0 (Version None)
Quarter: 2010Q1

REPORT INFORMATION
  Report Type: 
  Country: None (occurrence: None)
  Receive Date: 20100303
  Receipt Date: 20100224
  Transmission Date: 20100710
  Serious: Yes (Other)
  Sender: FDA-Public Use
  Company Number: GB-JNJCH-2010004104

PATIENT
  Sex: Male

DRUGS (5)
  1. NICORETTE [Suspect]
     Indication: SMOKING CESSATION THERAPY
     Dosage: TEXT:ONE PATCH
     Route: 062
     Dates: start: 20090501, end: 20090501
  2. NITROGLYCERIN [Concomitant]
     Indication: ANGINA PECTORIS
     Dosage: TEXT:UNKNOWN
     Route: 065
  3. DILTIAZEM HCL [Concomitant]
     Indication: CARDIAC DISORDER
     Dosage: TEXT:UNKNOWN
     Route: 065
  4. ROSUVASTATIN [Concomitant]
     Indication: BLOOD CHOLESTEROL INCREASED
     Dosage: TEXT:UNKNOWN
     Route: 065
  5. MEBEVERINE [Concomitant]
     Indication: ABDOMINAL DISCOMFORT
     Dosage: TEXT:UNKNOWN
     Route: 065

REACTIONS (1)
  - ANGINA PECTORIS [None]
